FAERS Safety Report 6381459-X (Version None)
Quarter: 2009Q3

REPORT INFORMATION
  Report Type: 
  Country: None (occurrence: None)
  Receive Date: 20090923
  Receipt Date: 20090917
  Transmission Date: 20100115
  Serious: Yes (Other)
  Sender: FDA-Public Use
  Company Number: 2009SP017467

PATIENT
  Age: 52 Year
  Sex: Male

DRUGS (7)
  1. TEMODAL [Suspect]
     Indication: MEDULLOBLASTOMA RECURRENT
     Dosage: 320 MG/KG; QD; PO
     Route: 048
     Dates: start: 20090201, end: 20090727
  2. OKIMUS (NO PREF. NAME) [Suspect]
     Indication: MUSCLE SPASMS
     Dosage: ; PO
     Route: 048
     Dates: start: 20090711, end: 20090713
  3. ALKONATREM (DEMECLOCYCLINE) [Suspect]
     Indication: DRUG USE FOR UNKNOWN INDICATION
     Dosage: 150 MG; ; PO
     Route: 048
  4. NAVOBAN (TROPISETRON HYDROCHLORIDE) [Suspect]
     Indication: DRUG USE FOR UNKNOWN INDICATION
     Dosage: ; PO
     Route: 048
     Dates: start: 20090201, end: 20090727
  5. SOLUPRED (PREDNISOLONE SODIUM SULFOBENZOATE) [Suspect]
     Indication: DRUG USE FOR UNKNOWN INDICATION
     Dosage: ; PO
     Route: 048
     Dates: start: 20090713, end: 20090720
  6. CETIRIZINE HCL [Suspect]
     Indication: HYPERSENSITIVITY
     Dates: start: 20090713, end: 20090720
  7. TANGANIL [Concomitant]

REACTIONS (4)
  - ASTHENIA [None]
  - CHOLESTASIS [None]
  - CYTOLYTIC HEPATITIS [None]
  - RASH [None]
